FAERS Safety Report 12355570 (Version 2)
Quarter: 2016Q3

REPORT INFORMATION
  Report Type: Report from Study
  Country: US (occurrence: US)
  Receive Date: 20160511
  Receipt Date: 20160809
  Transmission Date: 20161109
  Serious: Yes (Other)
  Sender: FDA-Public Use
  Company Number: US-ABBVIE-16K-163-1591629-00

PATIENT
  Sex: Female

DRUGS (1)
  1. HUMIRA [Suspect]
     Active Substance: ADALIMUMAB
     Indication: RHEUMATOID ARTHRITIS
     Route: 058
     Dates: start: 20160203

REACTIONS (7)
  - Dysstasia [Unknown]
  - Activities of daily living impaired [Recovering/Resolving]
  - Spinal compression fracture [Unknown]
  - Back pain [Recovering/Resolving]
  - Intervertebral disc protrusion [Unknown]
  - Joint swelling [Unknown]
  - Gait disturbance [Recovering/Resolving]

NARRATIVE: CASE EVENT DATE: 2016
